FAERS Safety Report 8236175-6 (Version None)
Quarter: 2012Q1

REPORT INFORMATION
  Report Type: 
  Country: None (occurrence: None)
  Receive Date: 20120327
  Receipt Date: 20120319
  Transmission Date: 20120608
  Serious: No
  Sender: FDA-Public Use
  Company Number: US-BIOGENIDEC-2012BI009781

PATIENT
  Sex: Female

DRUGS (1)
  1. TYSABRI [Suspect]
     Indication: MULTIPLE SCLEROSIS
     Route: 042
     Dates: start: 20100922, end: 20111107

REACTIONS (6)
  - GAIT DISTURBANCE [None]
  - CENTRAL NERVOUS SYSTEM LESION [None]
  - MUSCLE SPASTICITY [None]
  - DYSPHAGIA [None]
  - HYPOAESTHESIA [None]
  - DROOLING [None]
